FAERS Safety Report 12313744 (Version 1)
Quarter: 2016Q2

REPORT INFORMATION
  Report Type: Spontaneous
  Country: US (occurrence: None)
  Receive Date: 20160427
  Receipt Date: 20160427
  Transmission Date: 20160815
  Serious: Yes (Other)
  Sender: FDA-Public Use
  Company Number: None

PATIENT
  Age: 67 Year
  Sex: Female
  Weight: 69.4 kg

DRUGS (5)
  1. MELOXICAM. [Suspect]
     Active Substance: MELOXICAM
     Indication: INFLAMMATION
     Dosage: 1-2 TABS DAILY
     Dates: start: 20160311, end: 20160409
  2. MELOXICAM. [Suspect]
     Active Substance: MELOXICAM
     Indication: EXOSTOSIS
     Dosage: 1-2 TABS DAILY
     Dates: start: 20160311, end: 20160409
  3. VITAMIN D3 [Concomitant]
     Active Substance: CHOLECALCIFEROL
  4. CALCIUM [Concomitant]
     Active Substance: CALCIUM
  5. MELOXICAM. [Suspect]
     Active Substance: MELOXICAM
     Indication: PLANTAR FASCIITIS
     Dosage: 1-2 TABS DAILY
     Dates: start: 20160311, end: 20160409

REACTIONS (6)
  - Tremor [None]
  - Chest pain [None]
  - Nervousness [None]
  - Epistaxis [None]
  - Arrhythmia [None]
  - Dyspnoea [None]

NARRATIVE: CASE EVENT DATE: 20160311
